FAERS Safety Report 10166148 (Version 3)
Quarter: 2014Q2

REPORT INFORMATION
  Report Type: Report from Study
  Country: US (occurrence: US)
  Receive Date: 20140512
  Receipt Date: 20140623
  Transmission Date: 20141212
  Serious: Yes (Hospitalization)
  Sender: FDA-Public Use
  Company Number: US-BIOGENIDEC-2014BI043347

PATIENT
  Sex: Female

DRUGS (4)
  1. AVONEX [Suspect]
     Indication: MULTIPLE SCLEROSIS
     Route: 030
     Dates: start: 19961201, end: 1997
  2. COPAXONE [Concomitant]
     Indication: MULTIPLE SCLEROSIS
  3. BETASERON [Concomitant]
     Indication: MULTIPLE SCLEROSIS
  4. REBIF [Concomitant]

REACTIONS (7)
  - Peroneal nerve palsy [Unknown]
  - Abasia [Unknown]
  - Central nervous system lesion [Unknown]
  - Gait disturbance [Not Recovered/Not Resolved]
  - Injection site reaction [Unknown]
  - Multiple sclerosis relapse [Recovered/Resolved]
  - Drug ineffective [Recovered/Resolved]
